FAERS Safety Report 8854342 (Version 1)
Quarter: 2012Q4

REPORT INFORMATION
  Report Type: Spontaneous
  Country: US (occurrence: None)
  Receive Date: 20121019
  Receipt Date: 20121019
  Transmission Date: 20130627
  Serious: Yes (Hospitalization)
  Sender: FDA-Public Use
  Company Number: None

PATIENT
  Age: 79 Year
  Sex: Female
  Weight: 85.28 kg

DRUGS (27)
  1. IMIQUIMOD [Suspect]
     Indication: ACTINIC KERATOSIS
     Route: 061
     Dates: start: 20120612, end: 20120723
  2. OMEPRAZOLE [Concomitant]
  3. SIMVASTATIN [Concomitant]
  4. LEVOTHYROXINE [Concomitant]
  5. PRAMIPEXOLE [Concomitant]
  6. ZITIA [Concomitant]
  7. PRAMIPEXOLE [Concomitant]
  8. TRIAMTERENE HCT2 [Concomitant]
  9. PROAIR [Concomitant]
  10. MECLIZINE [Concomitant]
  11. AZITHROMYCIN [Concomitant]
  12. PREDISONE [Concomitant]
  13. SIMVASTATIN [Concomitant]
  14. ALBUTERNOL [Concomitant]
  15. ANTIVERT [Concomitant]
  16. ATROVENT [Concomitant]
  17. SOLN [Concomitant]
  18. PROTONIX [Concomitant]
  19. SOLUMEDROL(METHYLPREDNISOLONE SODIUM SUCCINATE) INFUSION [Concomitant]
  20. TYLENOL [Concomitant]
  21. XANAX [Concomitant]
  22. ZOFRAN [Concomitant]
  23. HEPARIN [Concomitant]
  24. PRAVASTATIN [Concomitant]
  25. CALCIUM + D [Concomitant]
  26. IRON FERROUS [Concomitant]
  27. FISH OIL [Concomitant]

REACTIONS (4)
  - Chest pain [None]
  - Pulmonary fibrosis [None]
  - Emphysema [None]
  - Hiatus hernia [None]
